FAERS Safety Report 24416984 (Version 1)
Quarter: 2024Q4

REPORT INFORMATION
  Report Type: Spontaneous
  Country: US (occurrence: US)
  Receive Date: 20241009
  Receipt Date: 20241009
  Transmission Date: 20250114
  Serious: No
  Sender: CB FLEET
  Company Number: US-PRESTIGE-202405-US-001509

PATIENT
  Sex: Female

DRUGS (2)
  1. MONISTAT 7 COMBINATION PACK [Suspect]
     Active Substance: MICONAZOLE NITRATE
     Indication: Fungal infection
     Dosage: USED 2 DAYS
  2. MONISTAT 7 COMBINATION PACK [Suspect]
     Active Substance: MICONAZOLE NITRATE

REACTIONS (2)
  - Vaginal haemorrhage [Not Recovered/Not Resolved]
  - Expired product administered [Unknown]
